FAERS Safety Report 15631322 (Version 7)
Quarter: 2019Q3

REPORT INFORMATION
  Report Type: Report from Study
  Country: US (occurrence: US)
  Receive Date: 20181119
  Receipt Date: 20190920
  Transmission Date: 20191004
  Serious: Yes (Hospitalization, Other)
  Sender: FDA-Public Use
  Company Number: US-ROCHE-2212183

PATIENT
  Age: 60 Year
  Sex: Female
  Weight: 97.16 kg

DRUGS (15)
  1. TRAMADOL HCL [Concomitant]
     Active Substance: TRAMADOL HYDROCHLORIDE
     Dosage: 1-2 TABS IN Q 4-6 HRS AS REUIRED FOR PAIN. NOT TO EXCEED 8 TABS IN 24 HOURS.
     Route: 048
  2. FISH OIL [Concomitant]
     Active Substance: FISH OIL
     Route: 048
  3. MILK OF MAGNESIA [Concomitant]
     Active Substance: MAGNESIUM HYDROXIDE
     Route: 065
  4. MAGNESIUM OXIDE. [Concomitant]
     Active Substance: MAGNESIUM OXIDE
  5. KLOR-CON M20 [Concomitant]
     Active Substance: POTASSIUM CHLORIDE
     Dosage: TWICE A DAY FOR 3 DAYS THEN 1 DAILY
     Route: 065
  6. MIRALAX [Concomitant]
     Active Substance: POLYETHYLENE GLYCOL 3350
     Route: 065
  7. ZOMETA [Concomitant]
     Active Substance: ZOLEDRONIC ACID
     Route: 042
  8. ATEZOLIZUMAB. [Suspect]
     Active Substance: ATEZOLIZUMAB
     Indication: ENDOMETRIAL CANCER
     Dosage: MOST RECENT DOSE ON 26/OCT/2018
     Route: 041
     Dates: start: 20181005
  9. MACROBID [Concomitant]
     Active Substance: NITROFURANTOIN\NITROFURANTOIN MONOHYDRATE
     Route: 048
  10. SIMVASTATIN. [Concomitant]
     Active Substance: SIMVASTATIN
     Route: 048
  11. ZANTAC [Concomitant]
     Active Substance: RANITIDINE HYDROCHLORIDE
     Route: 048
  12. METFORMIN HCL [Concomitant]
     Active Substance: METFORMIN HYDROCHLORIDE
     Route: 048
  13. NAPROSYN E [Concomitant]
     Active Substance: NAPROXEN
     Route: 048
  14. SENOKOT-S [Concomitant]
     Active Substance: DOCUSATE SODIUM\SENNOSIDES
     Route: 048
  15. BEVACIZUMAB. [Suspect]
     Active Substance: BEVACIZUMAB
     Indication: ENDOMETRIAL CANCER
     Dosage: MOST RECENT DOSE ON 26/OCT/2018
     Route: 042
     Dates: start: 20181005

REACTIONS (12)
  - Female genital tract fistula [Recovered/Resolved]
  - Hydronephrosis [Unknown]
  - Pain [Unknown]
  - Vaginal haemorrhage [Recovered/Resolved]
  - Proctalgia [Recovered/Resolved]
  - Vaginal haemorrhage [Recovered/Resolved]
  - Vulvovaginal pain [Recovered/Resolved]
  - Ureteric obstruction [Unknown]
  - Hypotension [Recovered/Resolved]
  - Hydronephrosis [Recovered/Resolved]
  - Acute kidney injury [Unknown]
  - Dizziness [Not Recovered/Not Resolved]

NARRATIVE: CASE EVENT DATE: 20181020
